FAERS Safety Report 4465754-7 (Version None)
Quarter: 2004Q4

REPORT INFORMATION
  Report Type: 
  Country: None (occurrence: None)
  Receive Date: 20041001
  Receipt Date: 20041001
  Transmission Date: 20050328
  Serious: Yes (Life-Threatening)
  Sender: FDA-Public Use
  Company Number: None

PATIENT
  Sex: Male
  Weight: 6 kg

DRUGS (20)
  1. INTRALIPID 10% [Suspect]
     Indication: CONGENITAL ANOMALY
     Dosage: SEE IMAGE
     Dates: start: 20040430, end: 20040601
  2. INTRALIPID 10% [Suspect]
     Indication: CONGENITAL ANOMALY
     Dosage: SEE IMAGE
     Dates: start: 20040602, end: 20040625
  3. INTRALIPID 10% [Suspect]
     Indication: CONGENITAL ANOMALY
     Dosage: SEE IMAGE
     Dates: start: 20040626, end: 20040915
  4. INTRALIPID 10% [Suspect]
  5. INTRALIPID 10% [Suspect]
  6. INTRALIPID 10% [Suspect]
  7. INTRALIPID 10% [Suspect]
  8. INTRALIPID 10% [Suspect]
  9. INTRALIPID 10% [Suspect]
  10. INTRALIPID 10% [Suspect]
  11. INTRALIPID 10% [Suspect]
  12. INTRALIPID 10% [Suspect]
  13. INTRALIPID 10% [Suspect]
  14. INTRALIPID 10% [Suspect]
  15. TPN [Concomitant]
  16. DEXTROSE [Concomitant]
  17. TROPHAMINE [Concomitant]
  18. CYSTEIME [Concomitant]
  19. M.V.I. [Concomitant]
  20. ZANTAC [Concomitant]

REACTIONS (5)
  - BILIRUBIN CONJUGATED INCREASED [None]
  - BLOOD BILIRUBIN INCREASED [None]
  - CONDITION AGGRAVATED [None]
  - LIVER FUNCTION TEST ABNORMAL [None]
  - PHARMACEUTICAL PRODUCT COMPLAINT [None]
